FAERS Safety Report 4912315-9 (Version None)
Quarter: 2006Q1

REPORT INFORMATION
  Report Type: 
  Country: None (occurrence: None)
  Receive Date: 20060215
  Receipt Date: 20060207
  Transmission Date: 20060701
  Serious: Yes (Hospitalization)
  Sender: FDA-Public Use
  Company Number: FR-AVENTIS-200610470FR

PATIENT
  Age: 86 Year
  Sex: Male
  Weight: 69 kg

DRUGS (5)
  1. DI-ANTALVIC [Suspect]
     Route: 048
     Dates: start: 20051130, end: 20051220
  2. IMOVANE [Suspect]
     Dosage: DOSE UNIT: UNITS
     Route: 048
     Dates: start: 20051130
  3. LASILIX [Suspect]
     Indication: HYPERTENSION
     Route: 048
     Dates: end: 20051226
  4. CORTANCYL [Suspect]
     Route: 048
  5. XANAX [Suspect]
     Route: 048

REACTIONS (1)
  - HYPOGLYCAEMIA [None]
